FAERS Safety Report 4696181-5 (Version None)
Quarter: 2005Q2

REPORT INFORMATION
  Report Type: 
  Country: None (occurrence: None)
  Receive Date: 20050620
  Receipt Date: 20050607
  Transmission Date: 20051028
  Serious: Yes (Congenital Anomaly)
  Sender: FDA-Public Use
  Company Number: 2005086108

PATIENT
  Sex: 0

DRUGS (2)
  1. TERRAMYCIN [Suspect]
     Indication: SKIN DISORDER
     Dosage: PLACENTAL
  2. CITALOPRAM HYDROBROMIDE [Suspect]
     Indication: POSTPARTUM DEPRESSION
     Dosage: PLACENTAL

REACTIONS (3)
  - CONGENITAL ANOMALY [None]
  - DRUG EXPOSURE DURING PREGNANCY [None]
  - SYNOSTOSIS [None]
